FAERS Safety Report 8225726-3 (Version None)
Quarter: 2012Q1

REPORT INFORMATION
  Report Type: 
  Country: None (occurrence: None)
  Receive Date: 20120321
  Receipt Date: 20120314
  Transmission Date: 20120608
  Serious: Yes (Other)
  Sender: FDA-Public Use
  Company Number: US-JNJFOC-20100805187

PATIENT
  Sex: Female

DRUGS (2)
  1. PREDNISONE TAB [Suspect]
     Indication: PNEUMONIA
     Route: 065
  2. LEVAQUIN [Suspect]
     Indication: LUNG INFECTION
     Route: 048
     Dates: start: 20080101, end: 20080101

REACTIONS (5)
  - ROTATOR CUFF SYNDROME [None]
  - TENDON RUPTURE [None]
  - PERIARTHRITIS [None]
  - PAIN IN EXTREMITY [None]
  - BURSITIS [None]
